FAERS Safety Report 7883479-2 (Version None)
Quarter: 2011Q4

REPORT INFORMATION
  Report Type: 
  Country: None (occurrence: None)
  Receive Date: 20111102
  Receipt Date: 20101116
  Transmission Date: 20120403
  Serious: No
  Sender: FDA-Public Use
  Company Number: US-GLAXOSMITHKLINE-A0776178A

PATIENT
  Age: 76 Year
  Sex: Female

DRUGS (9)
  1. PREMARIN [Concomitant]
  2. CRESTOR [Concomitant]
  3. FISH OIL [Concomitant]
  4. RYTHMOL SR [Suspect]
     Indication: ATRIAL FIBRILLATION
     Dosage: 225MG TWICE PER DAY
     Route: 048
     Dates: start: 20090301, end: 20090324
  5. RYTHMOL [Suspect]
     Indication: ATRIAL FIBRILLATION
     Route: 048
     Dates: start: 19940101
  6. ADALAT [Concomitant]
  7. COQ10 [Concomitant]
  8. COUMADIN [Concomitant]
  9. PROZAC [Concomitant]

REACTIONS (5)
  - DRUG INEFFECTIVE [None]
  - GINGIVAL ULCERATION [None]
  - NECK PAIN [None]
  - VISION BLURRED [None]
  - ASTHENIA [None]
